FAERS Safety Report 25710423 (Version 1)
Quarter: 2025Q3

REPORT INFORMATION
  Report Type: Spontaneous
  Country: US (occurrence: None)
  Receive Date: 20250820
  Receipt Date: 20250820
  Transmission Date: 20251020
  Serious: Yes (Death)
  Sender: FDA-CTU
  Company Number: None

PATIENT
  Age: 60 Year
  Sex: Female
  Weight: 45 kg

DRUGS (1)
  1. TECLISTAMAB [Suspect]
     Active Substance: TECLISTAMAB
     Indication: Plasma cell myeloma
     Dates: start: 20230426, end: 20240605

REACTIONS (5)
  - Progressive multifocal leukoencephalopathy [None]
  - T-lymphocyte count decreased [None]
  - Immunosuppression [None]
  - Nervous system disorder [None]
  - Seizure [None]

NARRATIVE: CASE EVENT DATE: 20230426
